FAERS Safety Report 6840904-3 (Version None)
Quarter: 2010Q3

REPORT INFORMATION
  Report Type: 
  Country: None (occurrence: None)
  Receive Date: 20100714
  Receipt Date: 20070615
  Transmission Date: 20110219
  Serious: No
  Sender: FDA-Public Use
  Company Number: US-PFIZER INC-2007051255

PATIENT
  Sex: Male
  Weight: 59.09 kg

DRUGS (6)
  1. CHANTIX [Suspect]
     Indication: SMOKING CESSATION THERAPY
     Dates: start: 20070501
  2. PAXIL [Concomitant]
  3. TRAZODONE HYDROCHLORIDE [Concomitant]
  4. METHADONE HCL [Concomitant]
  5. PERCOCET [Concomitant]
  6. SOMA [Concomitant]

REACTIONS (1)
  - HEADACHE [None]
